FAERS Safety Report 7745117-9 (Version None)
Quarter: 2011Q3

REPORT INFORMATION
  Report Type: 
  Country: None (occurrence: None)
  Receive Date: 20110913
  Receipt Date: 20110906
  Transmission Date: 20111222
  Serious: No
  Sender: FDA-Public Use
  Company Number: US-BIOGENIDEC-2011BI034384

PATIENT
  Sex: Female

DRUGS (3)
  1. TYSABRI [Suspect]
     Indication: MULTIPLE SCLEROSIS
     Route: 042
     Dates: start: 20080219
  2. ABILIFY [Concomitant]
     Indication: DEPRESSION
  3. VISTARIL [Concomitant]
     Indication: ANXIETY

REACTIONS (3)
  - BALANCE DISORDER [None]
  - FATIGUE [None]
  - DRUG SPECIFIC ANTIBODY PRESENT [None]
